FAERS Safety Report 6359445-5 (Version None)
Quarter: 2009Q3

REPORT INFORMATION
  Report Type: 
  Country: None (occurrence: None)
  Receive Date: 20090917
  Receipt Date: 20090904
  Transmission Date: 20100115
  Serious: Yes (Hospitalization, Other)
  Sender: FDA-Public Use
  Company Number: US-PFIZER INC-2008041702

PATIENT
  Sex: Female
  Weight: 90.703 kg

DRUGS (16)
  1. CHANTIX [Suspect]
     Indication: SMOKING CESSATION THERAPY
     Dates: start: 20080401, end: 20080501
  2. CHANTIX [Suspect]
     Dosage: 0.5 MG, 1X/DAY
     Route: 048
     Dates: start: 20090618
  3. CHANTIX [Suspect]
     Dosage: 1 MG, 2X/DAY
     Route: 048
     Dates: end: 20090830
  4. NEXIUM [Concomitant]
  5. CARVEDILOL [Concomitant]
     Dosage: 25 MG, UNK
  6. CARVEDILOL [Concomitant]
  7. ALTACE [Concomitant]
  8. PAXIL [Concomitant]
  9. TRAZODONE [Concomitant]
  10. KLONOPIN [Concomitant]
  11. FLEXERIL [Concomitant]
  12. PERCOCET [Concomitant]
     Dosage: NA EVERY 6 HOURS
  13. NEURONTIN [Concomitant]
  14. LIBRAX [Concomitant]
  15. POTASSIUM [Concomitant]
     Dosage: 10 MEQ, UNK
  16. LASIX [Concomitant]
     Dosage: 40 MG, UNK

REACTIONS (14)
  - ABNORMAL BEHAVIOUR [None]
  - ASTHENIA [None]
  - CYSTITIS [None]
  - DRUG INEFFECTIVE [None]
  - INSOMNIA [None]
  - MEMORY IMPAIRMENT [None]
  - MIGRAINE [None]
  - NAUSEA [None]
  - NIGHTMARE [None]
  - PNEUMONIA [None]
  - SINUSITIS [None]
  - STRESS [None]
  - WEIGHT DECREASED [None]
  - WEIGHT INCREASED [None]
